FAERS Safety Report 8066548-6 (Version None)
Quarter: 2012Q1

REPORT INFORMATION
  Report Type: 
  Country: None (occurrence: None)
  Receive Date: 20120124
  Receipt Date: 20120117
  Transmission Date: 20120608
  Serious: Yes (Other)
  Sender: FDA-Public Use
  Company Number: PHHY2012DE004688

PATIENT
  Sex: Male

DRUGS (6)
  1. RASILEZ [Suspect]
     Dosage: 1 DF, QD
     Route: 048
     Dates: start: 20110201, end: 20120110
  2. ATORVASTATIN CALCIUM [Concomitant]
  3. BELOC-ZOC FORTE [Concomitant]
  4. JANUMET [Concomitant]
  5. IRBESARTAN AND HYDROCHLOROTHIAZIDE [Concomitant]
  6. MARCUMAR [Concomitant]

REACTIONS (1)
  - CEREBROVASCULAR ACCIDENT [None]
